FAERS Safety Report 23905291 (Version 1)
Quarter: 2024Q2

REPORT INFORMATION
  Report Type: Spontaneous
  Country: CA (occurrence: CA)
  Receive Date: 20240527
  Receipt Date: 20240527
  Transmission Date: 20240716
  Serious: Yes (Hospitalization)
  Sender: FDA-Public Use
  Company Number: CA-TAKEDA-2024TUS051839

PATIENT
  Age: 45 Year
  Sex: Female

DRUGS (1)
  1. LIVTENCITY [Suspect]
     Active Substance: MARIBAVIR
     Indication: Cytomegalovirus infection
     Dosage: 400 MILLIGRAM, BID
     Route: 048

REACTIONS (2)
  - Viral load increased [Unknown]
  - Insurance issue [Unknown]

NARRATIVE: CASE EVENT DATE: 20240522
